FAERS Safety Report 23232669 (Version 2)
Quarter: 2024Q1

REPORT INFORMATION
  Report Type: Report from Study
  Country: US (occurrence: US)
  Receive Date: 20231128
  Receipt Date: 20240115
  Transmission Date: 20240409
  Serious: Yes (Other)
  Sender: FDA-Public Use
  Company Number: US-UCBSA-2023055676

PATIENT
  Age: 80 Year
  Sex: Male
  Weight: 75.4 kg

DRUGS (3)
  1. BRIVARACETAM [Suspect]
     Active Substance: BRIVARACETAM
     Indication: Seizure
     Dosage: 75 MILLIGRAM, 2X/DAY (BID)
     Route: 048
     Dates: end: 20231030
  2. BRIVARACETAM [Suspect]
     Active Substance: BRIVARACETAM
     Dosage: 75MG - 1.5T BID
     Route: 048
     Dates: start: 20231030
  3. DUPIXENT [Concomitant]
     Active Substance: DUPILUMAB
     Indication: Eczema
     Dosage: UNK, EV 2 WEEKS(QOW)

REACTIONS (4)
  - Seizure [Recovered/Resolved]
  - Off label use [Unknown]
  - Overdose [Unknown]
  - Drug ineffective [Unknown]

NARRATIVE: CASE EVENT DATE: 20231030
